FAERS Safety Report 4498077-0 (Version None)
Quarter: 2004Q3

REPORT INFORMATION
  Report Type: 
  Country: None (occurrence: None)
  Receive Date: 20040927
  Receipt Date: 20040727
  Transmission Date: 20050211
  Serious: No
  Sender: FDA-Public Use
  Company Number: USA040773703

PATIENT
  Age: 45 Year
  Sex: Female

DRUGS (7)
  1. STRATTERA [Suspect]
     Indication: ATTENTION DEFICIT/HYPERACTIVITY DISORDER
     Dosage: 80 MG DAY
     Dates: start: 20040715
  2. PAXIL [Concomitant]
  3. TOPROL-XL [Concomitant]
  4. VOLTAREN [Concomitant]
  5. LIPITOR [Concomitant]
  6. FLEXERIL [Concomitant]
  7. ASPIRIN [Concomitant]

REACTIONS (2)
  - EMOTIONAL DISORDER [None]
  - SOMNOLENCE [None]
